FAERS Safety Report 6317464-9 (Version None)
Quarter: 2009Q3

REPORT INFORMATION
  Report Type: 
  Country: None (occurrence: None)
  Receive Date: 20090821
  Receipt Date: 20090814
  Transmission Date: 20100115
  Serious: Yes (Other)
  Sender: FDA-Public Use
  Company Number: IT-JNJFOC-20090802723

PATIENT
  Age: 75 Year
  Sex: Female

DRUGS (1)
  1. HALOPERIDOL DECANOATE [Suspect]
     Indication: DRUG USE FOR UNKNOWN INDICATION
     Dosage: 3 VIALS, 50 MG/3ML,
     Route: 030

REACTIONS (6)
  - DYSKINESIA [None]
  - HYPOTENSION [None]
  - MEDICATION ERROR [None]
  - MYOCLONUS [None]
  - OVERDOSE [None]
  - SOPOR [None]
